FAERS Safety Report 15268600 (Version 2)
Quarter: 2018Q3

REPORT INFORMATION
  Report Type: Spontaneous
  Country: TH (occurrence: TH)
  Receive Date: 20180812
  Receipt Date: 20180824
  Transmission Date: 20181010
  Serious: Yes (Other)
  Sender: FDA-Public Use
  Company Number: PHHY2018TH064515

PATIENT
  Age: 65 Year
  Sex: Female

DRUGS (3)
  1. LETROZOLE. [Suspect]
     Active Substance: LETROZOLE
     Indication: BREAST CANCER
     Dosage: 2.5 MG, QD
     Route: 065
     Dates: start: 201805
  2. PALBOCICLIB [Suspect]
     Active Substance: PALBOCICLIB
     Indication: BREAST CANCER
     Dosage: 125 MG, QD
     Route: 065
     Dates: start: 201805
  3. ZOLEDRONIC ACID [Suspect]
     Active Substance: ZOLEDRONIC ACID
     Indication: METASTASES TO BONE
     Dosage: 4 MG, UNK
     Route: 042

REACTIONS (6)
  - Haematocrit decreased [Unknown]
  - Neutrophil count abnormal [Unknown]
  - Platelet count abnormal [Unknown]
  - White blood cell disorder [Unknown]
  - Neutropenia [Recovering/Resolving]
  - Cytogenetic abnormality [Unknown]
